FAERS Safety Report 9419459 (Version 2)
Quarter: 2013Q3

REPORT INFORMATION
  Report Type: Spontaneous
  Country: JP (occurrence: JP)
  Receive Date: 20130725
  Receipt Date: 20130806
  Transmission Date: 20140515
  Serious: Yes (Other)
  Sender: FDA-Public Use
  Company Number: JP-PFIZER INC-2013215932

PATIENT
  Age: 64 Year
  Sex: Male

DRUGS (6)
  1. LYRICA [Suspect]
     Indication: FIBROMYALGIA
     Dosage: 150 MG DAILY
     Route: 048
     Dates: start: 20130706, end: 20130713
  2. TRAMCET [Concomitant]
     Dosage: UNK
     Dates: end: 20130705
  3. FLIVAS OD [Concomitant]
     Indication: BENIGN PROSTATIC HYPERPLASIA
     Dosage: 50 MG, 1X/DAY
     Route: 048
  4. AMARYL [Concomitant]
     Indication: DIABETES MELLITUS
     Dosage: 1 MG, 1X/DAY
     Route: 048
  5. CRESTOR [Concomitant]
     Indication: LIPIDS ABNORMAL
     Dosage: 2.5 MG, 1X/DAY
     Route: 048
  6. GAMOFA [Concomitant]
     Indication: GASTRITIS
     Dosage: 20 MG, 2X/DAY
     Route: 048

REACTIONS (3)
  - Delirium [Recovered/Resolved]
  - Hallucination, visual [Recovered/Resolved]
  - Restlessness [Recovered/Resolved]
